FAERS Safety Report 22272863 (Version 1)
Quarter: 2023Q2

REPORT INFORMATION
  Report Type: Spontaneous
  Country: JP (occurrence: JP)
  Receive Date: 20230502
  Receipt Date: 20230502
  Transmission Date: 20230722
  Serious: Yes (Hospitalization, Other)
  Sender: FDA-Public Use
  Company Number: JP-002147023-NVSJ2023JP007260

PATIENT
  Age: 14 Year
  Sex: Male

DRUGS (1)
  1. AMLODIPINE [Suspect]
     Active Substance: AMLODIPINE BESYLATE
     Indication: Product used for unknown indication
     Dosage: UNK
     Route: 048

REACTIONS (6)
  - Altered state of consciousness [Recovering/Resolving]
  - Prerenal failure [Recovering/Resolving]
  - Hypotension [Recovering/Resolving]
  - Ureterolithiasis [Unknown]
  - Intentional overdose [Unknown]
  - Suicidal ideation [Unknown]
